FAERS Safety Report 19207081 (Version 1)
Quarter: 2021Q2

REPORT INFORMATION
  Report Type: Spontaneous
  Country: GB (occurrence: GB)
  Receive Date: 20210503
  Receipt Date: 20210503
  Transmission Date: 20210717
  Serious: Yes (Hospitalization, Other)
  Sender: FDA-Public Use
  Company Number: GB-ALVOGEN-2021-ALVOGEN-116941

PATIENT
  Age: 18 Year

DRUGS (1)
  1. GABAPENTIN. [Suspect]
     Active Substance: GABAPENTIN
     Indication: ANXIETY

REACTIONS (3)
  - Condition aggravated [Unknown]
  - Rett syndrome [Unknown]
  - Sepsis [Unknown]
